FAERS Safety Report 20715093 (Version 1)
Quarter: 2022Q2

REPORT INFORMATION
  Report Type: Report from Study
  Country: CO (occurrence: None)
  Receive Date: 20220415
  Receipt Date: 20220415
  Transmission Date: 20220720
  Serious: Yes (Death, Hospitalization, Other)
  Sender: FDA-Public Use
  Company Number: 2022A147687

PATIENT
  Age: 322 Month
  Sex: Female
  Weight: 45 kg

DRUGS (1)
  1. LYNPARZA [Suspect]
     Active Substance: OLAPARIB
     Indication: Breast cancer female
     Route: 048
     Dates: start: 20210828

REACTIONS (16)
  - Seizure [Fatal]
  - Haemoglobin decreased [Fatal]
  - Blood potassium decreased [Fatal]
  - Decreased appetite [Fatal]
  - Weight decreased [Fatal]
  - Respiration abnormal [Fatal]
  - Fatigue [Fatal]
  - Malaise [Fatal]
  - Vital functions abnormal [Fatal]
  - Dyspnoea [Fatal]
  - Respiratory arrest [Fatal]
  - Underweight [Fatal]
  - Gait disturbance [Not Recovered/Not Resolved]
  - Loss of consciousness [Not Recovered/Not Resolved]
  - Metastases to central nervous system [Not Recovered/Not Resolved]
  - Asthenia [Not Recovered/Not Resolved]

NARRATIVE: CASE EVENT DATE: 20220401
